FAERS Safety Report 9875903 (Version 2)
Quarter: 2014Q1

REPORT INFORMATION
  Report Type: Other
  Country: US (occurrence: US)
  Receive Date: 20140206
  Receipt Date: 20140206
  Transmission Date: 20141002
  Serious: No
  Sender: FDA-Public Use
  Company Number: US-ACORDA-ACO_35729_2013

PATIENT
  Age: 53 Year
  Sex: Female
  Weight: 68.27 kg

DRUGS (7)
  1. AMPYRA [Suspect]
     Indication: GAIT DISTURBANCE
     Dosage: 10 MG, BID
     Route: 048
     Dates: start: 20130322, end: 20130328
  2. AMPYRA [Suspect]
     Dosage: 10 MG, QD
     Route: 048
     Dates: start: 20130329, end: 20130412
  3. AMPYRA [Suspect]
     Dosage: 10 MG, BID
     Route: 048
     Dates: start: 20130413
  4. ADDERALL [Suspect]
     Indication: FATIGUE
     Dosage: 1 TAB EVERY MORNING AND 1 TABLET AT 1:00PM AS NEEDED
     Route: 048
     Dates: end: 20130328
  5. ADDERALL [Suspect]
     Dosage: 1 TABLET EVERY MORNING
     Route: 048
     Dates: start: 20130329
  6. COPAXONE [Concomitant]
     Indication: PRODUCT USED FOR UNKNOWN INDICATION
     Dosage: UNK
  7. VITAMINS [Concomitant]
     Indication: PRODUCT USED FOR UNKNOWN INDICATION
     Dosage: UNK

REACTIONS (1)
  - Insomnia [Recovered/Resolved]
